FAERS Safety Report 7560014-X (Version None)
Quarter: 2011Q2

REPORT INFORMATION
  Report Type: 
  Country: None (occurrence: None)
  Receive Date: 20110621
  Receipt Date: 20110610
  Transmission Date: 20111010
  Serious: Yes (Other)
  Sender: FDA-Public Use
  Company Number: PHHY2011US51688

PATIENT
  Sex: Female

DRUGS (1)
  1. FANAPT [Suspect]
     Dosage: 6 MG, BID

REACTIONS (3)
  - PARKINSON'S DISEASE [None]
  - MUSCLE RIGIDITY [None]
  - LIMB DISCOMFORT [None]
